FAERS Safety Report 5420372-9 (Version None)
Quarter: 2007Q3

REPORT INFORMATION
  Report Type: 
  Country: None (occurrence: None)
  Receive Date: 20070816
  Receipt Date: 20070803
  Transmission Date: 20080115
  Serious: Yes (Hospitalization, Disabling, Other)
  Sender: FDA-Public Use
  Company Number: 17171

PATIENT
  Age: 10 Year
  Sex: Female

DRUGS (5)
  1. LEUCOVORIN CALCIUM [Suspect]
     Indication: NASOPHARYNGEAL CANCER
     Dosage: 25 MG/M2 PER_CYCLE
  2. METHOTREXATE [Suspect]
     Indication: NASOPHARYNGEAL CANCER
     Dosage: 120 MG/M2 PER_CYCLE
  3. CISPLATIN [Suspect]
     Indication: NASOPHARYNGEAL CANCER
     Dosage: 100 MG/M2 PER_CYCLE
  4. FLUOROURACIL [Suspect]
     Indication: NASOPHARYNGEAL CANCER
     Dosage: 1000 MG/M2 PER_CYCLE
  5. INTENSITY-MODULATED RADIOTHERAPY [Suspect]
     Indication: NASOPHARYNGEAL CANCER

REACTIONS (11)
  - CHRONIC SINUSITIS [None]
  - CONDUCTIVE DEAFNESS [None]
  - DRUG TOXICITY [None]
  - DRY MOUTH [None]
  - EFFUSION [None]
  - EUSTACHIAN TUBE DYSFUNCTION [None]
  - LOCAL SWELLING [None]
  - MYOPIA [None]
  - NODULE [None]
  - PARAESTHESIA [None]
  - TOOTH DISORDER [None]
